FAERS Safety Report 10447963 (Version 5)
Quarter: 2016Q4

REPORT INFORMATION
  Report Type: Spontaneous
  Country: US (occurrence: US)
  Receive Date: 20140911
  Receipt Date: 20161020
  Transmission Date: 20170206
  Serious: Yes (Death, Hospitalization, Disabling, Other)
  Sender: FDA-Public Use
  Company Number: US-009507513-1409USA004452

PATIENT
  Sex: Male
  Weight: 117.91 kg

DRUGS (2)
  1. JANUMET [Suspect]
     Active Substance: METFORMIN HYDROCHLORIDE\SITAGLIPTIN PHOSPHATE
     Indication: TYPE 2 DIABETES MELLITUS
     Dosage: 50-1000 MG, QD
     Route: 048
     Dates: start: 2007, end: 20130819
  2. JANUVIA [Suspect]
     Active Substance: SITAGLIPTIN PHOSPHATE
     Indication: TYPE 2 DIABETES MELLITUS
     Dosage: 100 MG, QD
     Route: 048
     Dates: start: 20130903

REACTIONS (31)
  - Musculoskeletal pain [Unknown]
  - Dehydration [Unknown]
  - Death [Fatal]
  - Hypertension [Unknown]
  - Nausea [Unknown]
  - Renal disorder [Unknown]
  - Cholelithiasis [Unknown]
  - Anaemia [Unknown]
  - Vision blurred [Unknown]
  - Adenocarcinoma pancreas [Not Recovered/Not Resolved]
  - Pancreaticoduodenectomy [Unknown]
  - Jejunostomy [Unknown]
  - Back disorder [Not Recovered/Not Resolved]
  - Retinopathy [Unknown]
  - Bile duct stent insertion [Recovered/Resolved]
  - Neuropathy peripheral [Unknown]
  - Ascites [Unknown]
  - Pulse abnormal [Unknown]
  - Adverse drug reaction [Unknown]
  - Diabetes mellitus inadequate control [Unknown]
  - Pancreatic carcinoma metastatic [Not Recovered/Not Resolved]
  - Gastric ulcer [Unknown]
  - Renal impairment [Unknown]
  - Inflammation [Unknown]
  - Sleep apnoea syndrome [Unknown]
  - Back pain [Unknown]
  - Gastrointestinal haemorrhage [Unknown]
  - Glaucoma [Unknown]
  - Bile duct stenosis [Recovered/Resolved]
  - Biliary sphincterotomy [Recovered/Resolved]
  - Treatment noncompliance [Unknown]

NARRATIVE: CASE EVENT DATE: 2007
